FAERS Safety Report 7755699-9 (Version None)
Quarter: 2011Q3

REPORT INFORMATION
  Report Type: 
  Country: None (occurrence: None)
  Receive Date: 20110916
  Receipt Date: 20110901
  Transmission Date: 20111222
  Serious: Yes (Other)
  Sender: FDA-Public Use
  Company Number: PHHY2011FR76287

PATIENT
  Sex: Female

DRUGS (4)
  1. ATENOLOL [Concomitant]
     Indication: HYPERTENSION
     Dosage: 50 MG, UNK
  2. RASILEZ [Suspect]
     Dosage: 300 MG, QD
     Dates: start: 20110701, end: 20110801
  3. IPERTEN [Concomitant]
     Indication: HYPERTENSION
     Dosage: 5 MG, UNK
  4. RASILEZ [Suspect]
     Indication: HYPERTENSION
     Dosage: 150 MG, QD
     Dates: start: 20110404, end: 20110701

REACTIONS (2)
  - CREATININE RENAL CLEARANCE DECREASED [None]
  - RENAL FAILURE [None]
